FAERS Safety Report 10025584 (Version 2)
Quarter: 2014Q2

REPORT INFORMATION
  Report Type: Spontaneous
  Country: US (occurrence: None)
  Receive Date: 20140318
  Receipt Date: 20140411
  Transmission Date: 20141212
  Serious: Yes (Life-Threatening)
  Sender: FDA-Public Use
  Company Number: BR14-073-AE

PATIENT
  Age: 60 Year
  Sex: Female

DRUGS (2)
  1. BUPRENORPHRINE/NALOXONE [Suspect]
     Indication: DRUG DEPENDENCE
     Route: 048
     Dates: start: 2008
  2. XANAX [Concomitant]

REACTIONS (12)
  - Depression [None]
  - Apparent death [None]
  - Feeling abnormal [None]
  - Chills [None]
  - Insomnia [None]
  - Tremor [None]
  - Crying [None]
  - Drug dependence [None]
  - Quality of life decreased [None]
  - Underdose [None]
  - Wrong technique in drug usage process [None]
  - Substance use [None]
